FAERS Safety Report 4878649-1 (Version None)
Quarter: 2006Q1

REPORT INFORMATION
  Report Type: 
  Country: None (occurrence: None)
  Receive Date: 20060110
  Receipt Date: 20060110
  Transmission Date: 20060701
  Serious: Yes (Hospitalization, Other)
  Sender: FDA-Public Use
  Company Number: None

PATIENT
  Sex: Male
  Weight: 47.1741 kg

DRUGS (2)
  1. ESTRAMUSTINE [Suspect]
     Indication: PROSTATE CANCER
     Dosage: SEE IMAGE
     Dates: start: 20050728
  2. RADIATIN [Suspect]
     Dosage: SEE IMAGE

REACTIONS (5)
  - ATRIAL FIBRILLATION [None]
  - COUGH [None]
  - DIZZINESS [None]
  - DYSPNOEA [None]
  - OEDEMA PERIPHERAL [None]
